FAERS Safety Report 4555477-8 (Version None)
Quarter: 2005Q1

REPORT INFORMATION
  Report Type: 
  Country: None (occurrence: None)
  Receive Date: 20041221
  Receipt Date: 20040922
  Transmission Date: 20050727
  Serious: Yes (Other)
  Sender: FDA-Public Use
  Company Number: US-JNJFOC-20040907882

PATIENT
  Age: 33 Year
  Sex: Female
  Weight: 57.1532 kg

DRUGS (2)
  1. ORTHO TRI-CYCLEN LO [Suspect]
     Indication: CONTRACEPTION
     Dosage: 1 DOSE(S), 1I N 1 DAY, ORAL
     Route: 048
  2. ANTIBIOTICS (ANTIBIOTICS) [Concomitant]

REACTIONS (3)
  - DRUG EXPOSURE DURING PREGNANCY [None]
  - LABORATORY TEST ABNORMAL [None]
  - PREGNANCY ON ORAL CONTRACEPTIVE [None]
